FAERS Safety Report 4713849-2 (Version None)
Quarter: 2005Q3

REPORT INFORMATION
  Report Type: 
  Country: None (occurrence: None)
  Receive Date: 20050712
  Receipt Date: 20050630
  Transmission Date: 20060218
  Serious: Yes (Hospitalization, Disabling, Other)
  Sender: FDA-Public Use
  Company Number: 2005094952

PATIENT
  Age: 62 Year
  Sex: Female
  Weight: 54.4316 kg

DRUGS (5)
  1. ACCUPRIL [Suspect]
     Indication: HYPERTENSION
     Dosage: SEE IMAGE
  2. NEURONTIN [Suspect]
     Indication: DIABETIC NEUROPATHY
     Dosage: 600 MG, ORAL
     Route: 048
  3. INSULIN [Suspect]
     Indication: DIABETES MELLITUS INSULIN-DEPENDENT
  4. FUROSEMIDE (FUROSEMIDE) [Concomitant]
  5. DAILY VITAMINS (VITAMINS NOS) [Concomitant]

REACTIONS (20)
  - BLOOD GLUCOSE DECREASED [None]
  - BLOOD PRESSURE INCREASED [None]
  - BONE INFECTION [None]
  - CATARACT [None]
  - CEREBROVASCULAR ACCIDENT [None]
  - DIABETIC COMPLICATION [None]
  - DIABETIC RETINOPATHY [None]
  - DRUG EFFECT DECREASED [None]
  - FALL [None]
  - LIMB INJURY [None]
  - LOCALISED INFECTION [None]
  - MEMORY IMPAIRMENT [None]
  - MYOPIA [None]
  - NAIL DYSTROPHY [None]
  - POST PROCEDURAL COMPLICATION [None]
  - SPEECH DISORDER [None]
  - TOE AMPUTATION [None]
  - UPPER LIMB FRACTURE [None]
  - VISION BLURRED [None]
  - WRIST FRACTURE [None]
